FAERS Safety Report 10112316 (Version 1)
Quarter: 2014Q2

REPORT INFORMATION
  Report Type: Spontaneous
  Country: FR (occurrence: FR)
  Receive Date: 20140425
  Receipt Date: 20140425
  Transmission Date: 20141212
  Serious: Yes (Death, Hospitalization, Other)
  Sender: FDA-Public Use
  Company Number: FR-B.I. PHARMACEUTICALS,INC./RIDGEFIELD-2014-BI-18154FF

PATIENT
  Age: 93 Year
  Sex: Female

DRUGS (1)
  1. PRADAXA [Suspect]
     Indication: ATRIAL FIBRILLATION
     Dosage: 220 MG
     Route: 048
     Dates: end: 20131110

REACTIONS (6)
  - General physical health deterioration [Fatal]
  - Cardiac failure [Fatal]
  - Pulmonary congestion [Fatal]
  - Urinary tract infection [Fatal]
  - Haematoma [Unknown]
  - Anaemia [Unknown]
